FAERS Safety Report 5792165-4 (Version None)
Quarter: 2008Q2

REPORT INFORMATION
  Report Type: 
  Country: None (occurrence: None)
  Receive Date: 20080626
  Receipt Date: 20080620
  Transmission Date: 20081010
  Serious: Yes (Hospitalization)
  Sender: FDA-Public Use
  Company Number: US-BOEHRINGER INGELHEIM GMBH, GERMANY-2006-BP-02485BP

PATIENT
  Sex: Male

DRUGS (19)
  1. MIRAPEX [Suspect]
     Indication: PARKINSON'S DISEASE
     Route: 048
     Dates: start: 20010901, end: 20060101
  2. SINEMET [Concomitant]
     Indication: PARKINSON'S DISEASE
     Route: 048
     Dates: start: 20040101
  3. SINEMET [Concomitant]
     Route: 048
     Dates: start: 20070529
  4. COMTAN [Concomitant]
     Indication: PARKINSON'S DISEASE
     Dates: start: 20040801
  5. COMTAN [Concomitant]
     Dates: start: 20070529
  6. SEROQUEL [Concomitant]
     Indication: PSYCHOTIC DISORDER
     Route: 048
     Dates: start: 20041101
  7. SELEGILINE HCL [Concomitant]
     Indication: PARKINSON'S DISEASE
     Route: 048
     Dates: start: 20010101, end: 20010101
  8. PERGOLIDE MESYLATE [Concomitant]
     Indication: PARKINSON'S DISEASE
     Dates: start: 20010101, end: 20010101
  9. PARCOPA [Concomitant]
     Indication: PARKINSON'S DISEASE
     Dates: start: 20051101
  10. TYLENOL [Concomitant]
  11. NALTREXONE HYDROCHLORIDE [Concomitant]
     Dates: start: 20060701
  12. AZILECT [Concomitant]
     Route: 048
     Dates: start: 20060801
  13. VITAMIN E [Concomitant]
     Indication: SUPPLEMENTATION THERAPY
     Dates: start: 20010201
  14. M.V.I. [Concomitant]
     Dates: start: 20061201
  15. DOXYCYCLINE [Concomitant]
     Dates: start: 20020101, end: 20020101
  16. TETRACYCLINE [Concomitant]
     Dates: start: 20021001, end: 20030101
  17. ADVIL [Concomitant]
  18. OXYCODONE HCL [Concomitant]
     Indication: PAIN
     Route: 048
  19. COLACE [Concomitant]
     Route: 048

REACTIONS (8)
  - DELUSION [None]
  - DEPRESSION [None]
  - DRUG DISPENSING ERROR [None]
  - HYPERSEXUALITY [None]
  - INTENTIONAL DRUG MISUSE [None]
  - OBSESSIVE-COMPULSIVE DISORDER [None]
  - PATHOLOGICAL GAMBLING [None]
  - PSYCHOTIC DISORDER [None]
